FAERS Safety Report 4414193-3 (Version None)
Quarter: 2004Q3

REPORT INFORMATION
  Report Type: 
  Country: None (occurrence: None)
  Receive Date: 20040728
  Receipt Date: 20040715
  Transmission Date: 20050211
  Serious: Yes (Other)
  Sender: FDA-Public Use
  Company Number: 2004-UK-00691UK

PATIENT
  Age: 42 Year
  Sex: Female

DRUGS (2)
  1. TIOTROPIUM(TIOTROPIUM BROMIDE) [Suspect]
     Indication: CHRONIC OBSTRUCTIVE AIRWAYS DISEASE
     Dosage: 18 MCG (18 MCG, OD)  IH
     Route: 055
     Dates: start: 20040617, end: 20040622
  2. ALBUTEROL SULFATE [Concomitant]

REACTIONS (1)
  - SWELLING FACE [None]
